FAERS Safety Report 4488555-2 (Version None)
Quarter: 2004Q4

REPORT INFORMATION
  Report Type: 
  Country: None (occurrence: None)
  Receive Date: 20041028
  Receipt Date: 20041028
  Transmission Date: 20050328
  Serious: Yes (Hospitalization)
  Sender: FDA-Public Use
  Company Number: None

PATIENT
  Age: 37 Year
  Sex: Male
  Weight: 87 kg

DRUGS (11)
  1. REYATAZ [Suspect]
     Indication: HIV INFECTION
     Dosage: 300 MG, QD, ORAL
     Route: 048
     Dates: start: 20040505, end: 20040521
  2. NORVIR [Suspect]
     Indication: HIV INFECTION
     Dosage: 100MG, QD, ORAL
     Route: 048
     Dates: start: 20040505, end: 20040521
  3. EMTRIVA [Suspect]
     Indication: HIV INFECTION
     Dosage: 200MG, QD, ORAL
     Route: 048
     Dates: start: 20040505, end: 20040521
  4. VIREAD [Suspect]
     Indication: HIV INFECTION
     Dosage: 300 MG, QD, ORAL
     Route: 048
     Dates: start: 20040505, end: 20040521
  5. SEPTRA DS [Concomitant]
  6. ZOVIRAX [Concomitant]
  7. DIFLUCAN [Concomitant]
  8. ZYPREXA [Concomitant]
  9. COLACE [Concomitant]
  10. COMPAZINE [Concomitant]
  11. DULCOLAX [Concomitant]

REACTIONS (6)
  - AGITATION [None]
  - DRUG INTERACTION [None]
  - DYSPNOEA [None]
  - HERPES SIMPLEX [None]
  - PSYCHOTIC DISORDER [None]
  - PYREXIA [None]
